FAERS Safety Report 5491115-8 (Version None)
Quarter: 2007Q4

REPORT INFORMATION
  Report Type: 
  Country: None (occurrence: None)
  Receive Date: 20071019
  Receipt Date: 20071008
  Transmission Date: 20080405
  Serious: Yes (Other)
  Sender: FDA-Public Use
  Company Number: US-BRISTOL-MYERS SQUIBB COMPANY-13933395

PATIENT
  Age: 74 Year
  Sex: Male

DRUGS (8)
  1. MITOMYCIN [Suspect]
     Indication: OESOPHAGEAL ADENOCARCINOMA
  2. ETOPOSIDE [Suspect]
     Indication: OESOPHAGEAL ADENOCARCINOMA
  3. METHOTREXATE [Suspect]
     Indication: OESOPHAGEAL ADENOCARCINOMA
  4. LEUCOVORIN [Suspect]
     Indication: OESOPHAGEAL ADENOCARCINOMA
  5. EPIRUBICIN [Suspect]
     Indication: OESOPHAGEAL ADENOCARCINOMA
  6. FLUOROURACIL [Suspect]
     Indication: OESOPHAGEAL ADENOCARCINOMA
  7. PROLEUKIN [Suspect]
     Indication: OESOPHAGEAL ADENOCARCINOMA
  8. RADIOTHERAPY [Suspect]
     Indication: OESOPHAGEAL ADENOCARCINOMA

REACTIONS (2)
  - MYELODYSPLASTIC SYNDROME [None]
  - RASH PRURITIC [None]
